FAERS Safety Report 21108704 (Version 1)
Quarter: 2022Q3

REPORT INFORMATION
  Report Type: Spontaneous
  Country: FR (occurrence: FR)
  Receive Date: 20220721
  Receipt Date: 20220721
  Transmission Date: 20221026
  Serious: Yes (Hospitalization)
  Sender: FDA-Public Use
  Company Number: None

PATIENT
  Age: 52 Year
  Sex: Male
  Weight: 82 kg

DRUGS (4)
  1. FLUOROURACIL [Suspect]
     Active Substance: FLUOROURACIL
     Indication: Colorectal cancer metastatic
     Dosage: FLUOROURACILE TEVA 5000 MG/100 ML,UNIT DOSE: 2300  MG , FREQUENCY : 1 CYCLICAL
     Dates: start: 20210722, end: 20220217
  2. DOXYCYCLINE [Suspect]
     Active Substance: DOXYCYCLINE
     Indication: Acne
     Dosage: 200 MILLIGRAM DAILY; 100 MG MORNING AND EVENING
     Dates: start: 202109, end: 202204
  3. VECTIBIX [Suspect]
     Active Substance: PANITUMUMAB
     Indication: Colorectal cancer metastatic
     Dosage: UNIT DOSE: 510 MG , FREQUENCY : 1 CYCLICAL
     Dates: start: 20210722, end: 20220113
  4. OXALIPLATIN [Concomitant]
     Active Substance: OXALIPLATIN
     Indication: Colorectal cancer metastatic
     Dosage: OXALIPLATINE TEVA 5 MG/ML,UNIT DOSE: 170 MG , FREQUENCY : 1 CYCLICAL
     Dates: start: 20210722, end: 20211007

REACTIONS (2)
  - Renal failure [Not Recovered/Not Resolved]
  - Tubulointerstitial nephritis [Not Recovered/Not Resolved]

NARRATIVE: CASE EVENT DATE: 20220101
